FAERS Safety Report 5813640-X (Version None)
Quarter: 2008Q3

REPORT INFORMATION
  Report Type: 
  Country: None (occurrence: None)
  Receive Date: 20080717
  Receipt Date: 20080709
  Transmission Date: 20090109
  Serious: Yes (Hospitalization, Congenital Anomaly)
  Sender: FDA-Public Use
  Company Number: A0683128A

PATIENT
  Sex: Male
  Weight: 3.4 kg

DRUGS (11)
  1. PAXIL CR [Suspect]
     Indication: PANIC DISORDER
     Dosage: 25MG TWICE PER DAY
     Dates: start: 20020601
  2. PAXIL [Concomitant]
     Indication: PANIC DISORDER
     Dates: start: 19990101, end: 20020101
  3. ALDOMET [Concomitant]
     Dosage: 500MG THREE TIMES PER DAY
     Dates: start: 20040116
  4. ZOFRAN [Concomitant]
     Dates: start: 20040116, end: 20040101
  5. VITAMIN TAB [Concomitant]
     Dates: start: 20040116
  6. TIGAN [Concomitant]
     Dates: start: 20040201
  7. INSULIN INSULATARD NPH NORDISK [Concomitant]
  8. HUMALOG [Concomitant]
  9. ZITHROMAX [Concomitant]
     Dates: start: 20031201
  10. FLUOXETINE [Concomitant]
  11. HYDROXYZINE [Concomitant]

REACTIONS (2)
  - CRANIOSYNOSTOSIS [None]
  - DRUG EXPOSURE DURING PREGNANCY [None]
